FAERS Safety Report 5939272-0 (Version None)
Quarter: 2008Q4

REPORT INFORMATION
  Report Type: 
  Country: None (occurrence: None)
  Receive Date: 20081103
  Receipt Date: 20081022
  Transmission Date: 20090506
  Serious: Yes (Hospitalization, Other)
  Sender: FDA-Public Use
  Company Number: US-PFIZER INC-2008087256

PATIENT
  Sex: Male
  Weight: 99.8 kg

DRUGS (9)
  1. CHANTIX [Suspect]
     Indication: SMOKING CESSATION THERAPY
     Dates: start: 20070801
  2. METOPROLOL TARTRATE [Suspect]
     Indication: HYPERTENSION
     Dates: end: 20080101
  3. FELODIPINE [Suspect]
     Indication: HYPERTENSION
     Dates: end: 20080101
  4. XANAX [Concomitant]
  5. CITALOPRAM HYDROBROMIDE [Concomitant]
  6. LISINOPRIL [Concomitant]
  7. AMLODIPINE [Concomitant]
  8. SIMVASTATIN [Concomitant]
     Indication: BLOOD CHOLESTEROL INCREASED
  9. ACETYLSALICYLIC ACID SRT [Concomitant]

REACTIONS (5)
  - BLOOD PRESSURE ABNORMAL [None]
  - CAROTID ARTERY OCCLUSION [None]
  - CIRCUMSTANCE OR INFORMATION CAPABLE OF LEADING TO MEDICATION ERROR [None]
  - FALL [None]
  - MEDICATION ERROR [None]
